FAERS Safety Report 13293148 (Version 1)
Quarter: 2017Q1

REPORT INFORMATION
  Report Type: Report from Study
  Country: FR (occurrence: FR)
  Receive Date: 20170303
  Receipt Date: 20170303
  Transmission Date: 20170428
  Serious: Yes (Other)
  Sender: FDA-Public Use
  Company Number: FR-LABORATOIRE HRA PHARMA-1063800

PATIENT
  Age: 58 Year
  Sex: Female

DRUGS (5)
  1. LYSODREN [Suspect]
     Active Substance: MITOTANE
  2. KETOCONAZOLE. [Suspect]
     Active Substance: KETOCONAZOLE
  3. SIGNIFOR [Suspect]
     Active Substance: PASIREOTIDE
  4. CABERGOLINE. [Suspect]
     Active Substance: CABERGOLINE
  5. METOPIRONE [Suspect]
     Active Substance: METYRAPONE

REACTIONS (1)
  - Drug-induced liver injury [None]
